FAERS Safety Report 4736669-1 (Version None)
Quarter: 2005Q3

REPORT INFORMATION
  Report Type: 
  Country: None (occurrence: None)
  Receive Date: 20050804
  Receipt Date: 20050728
  Transmission Date: 20060218
  Serious: No
  Sender: FDA-Public Use
  Company Number: ZONI002192

PATIENT
  Sex: Female

DRUGS (8)
  1. ZONEGRAN [Suspect]
     Dosage: 100 MG, 1 IN 1 D, ORAL
     Route: 048
     Dates: start: 20050101
  2. LISINOPRIL [Concomitant]
  3. ACETYLSALICYLIC ACID SRT [Concomitant]
  4. EFFEXOR [Concomitant]
  5. PLAVIX [Concomitant]
  6. GLUCOPHAGE [Concomitant]
  7. PROTONIX [Concomitant]
  8. DIOVAN [Concomitant]

REACTIONS (1)
  - ANGIONEUROTIC OEDEMA [None]
